FAERS Safety Report 11209644 (Version 1)
Quarter: 2015Q2

REPORT INFORMATION
  Report Type: Spontaneous
  Country: US (occurrence: US)
  Receive Date: 20150622
  Receipt Date: 20150622
  Transmission Date: 20150821
  Serious: No
  Sender: FDA-Public Use
  Company Number: US-B.I. PHARMACEUTICALS,INC./RIDGEFIELD-2015-BI-31095BP

PATIENT
  Age: 64 Year
  Sex: Female
  Weight: 90 kg

DRUGS (11)
  1. PRAVASTATIN SODIUM. [Concomitant]
     Active Substance: PRAVASTATIN SODIUM
     Indication: BLOOD CHOLESTEROL INCREASED
     Dosage: 80 MG
     Route: 048
     Dates: start: 2010
  2. TRADJENTA [Suspect]
     Active Substance: LINAGLIPTIN
     Indication: TYPE 2 DIABETES MELLITUS
     Dosage: 5 MG
     Route: 048
     Dates: start: 20150603
  3. FISH OIL [Concomitant]
     Active Substance: FISH OIL
     Indication: PRODUCT USED FOR UNKNOWN INDICATION
     Dosage: 1 ANZ
     Route: 048
     Dates: start: 2010
  4. MULTI VITAMIN [Concomitant]
     Active Substance: VITAMINS
     Indication: PRODUCT USED FOR UNKNOWN INDICATION
     Dosage: 1 ANZ
     Route: 048
     Dates: start: 2010
  5. NIACIN. [Concomitant]
     Active Substance: NIACIN
     Indication: PRODUCT USED FOR UNKNOWN INDICATION
     Dosage: 1 ANZ
     Route: 048
     Dates: start: 2010
  6. CETIRIZINE [Concomitant]
     Active Substance: CETIRIZINE HYDROCHLORIDE
     Indication: PRODUCT USED FOR UNKNOWN INDICATION
     Dosage: 1 ANZ
     Route: 048
     Dates: start: 2010
  7. LOSARTAN POTASSIUM. [Concomitant]
     Active Substance: LOSARTAN POTASSIUM
     Indication: HYPERTENSION
     Dosage: 50 MG
     Route: 048
     Dates: start: 2010
  8. FLAXSEED [Concomitant]
     Active Substance: FLAX SEED
     Indication: PRODUCT USED FOR UNKNOWN INDICATION
     Dosage: 1 ANZ
     Route: 048
     Dates: start: 2010
  9. ASPIRIN. [Concomitant]
     Active Substance: ASPIRIN
     Indication: PRODUCT USED FOR UNKNOWN INDICATION
     Dosage: 81 MG
     Route: 048
     Dates: start: 2010
  10. CLOPIDOGREL [Concomitant]
     Active Substance: CLOPIDOGREL BISULFATE
     Indication: PERIPHERAL VASCULAR DISORDER
     Dosage: 75 MG
     Route: 048
     Dates: start: 2010
  11. CALCIUM [Concomitant]
     Active Substance: CALCIUM
     Indication: PRODUCT USED FOR UNKNOWN INDICATION
     Dosage: 1 ANZ
     Route: 048
     Dates: start: 2010

REACTIONS (1)
  - Blood glucose increased [Not Recovered/Not Resolved]

NARRATIVE: CASE EVENT DATE: 20150603
